FAERS Safety Report 22260946 (Version 3)
Quarter: 2023Q2

REPORT INFORMATION
  Report Type: Spontaneous
  Country: US (occurrence: US)
  Receive Date: 20230427
  Receipt Date: 20230523
  Transmission Date: 20230722
  Serious: Yes (Hospitalization, Other)
  Sender: FDA-Public Use
  Company Number: US-009507513-2304USA009068

PATIENT
  Age: 79 Year
  Sex: Female
  Weight: 80 kg

DRUGS (5)
  1. KEYTRUDA [Suspect]
     Active Substance: PEMBROLIZUMAB
     Indication: Renal cell carcinoma
     Dosage: 200 MILLIGRAM, Q3W
     Route: 042
     Dates: start: 20230331, end: 20230331
  2. LANSOPRAZOLE [Concomitant]
     Active Substance: LANSOPRAZOLE
     Dosage: 30 MILLIGRAM, QD
     Route: 048
  3. METOPROLOL [Concomitant]
     Active Substance: METOPROLOL
     Indication: Hypertension
     Dosage: 25 MILLIGRAM, BID
     Route: 048
  4. MULTAQ [Concomitant]
     Active Substance: DRONEDARONE
     Indication: Atrial fibrillation
     Dosage: 400 MILLIGRAM, BID
     Route: 048
  5. XARELTO [Concomitant]
     Active Substance: RIVAROXABAN
     Indication: Atrial fibrillation
     Dosage: 20 MILLIGRAM, QD
     Route: 048

REACTIONS (2)
  - Sjogren^s syndrome [Recovering/Resolving]
  - Urinary tract infection [Unknown]

NARRATIVE: CASE EVENT DATE: 20230401
